FAERS Safety Report 7736048-9 (Version None)
Quarter: 2011Q3

REPORT INFORMATION
  Report Type: 
  Country: None (occurrence: None)
  Receive Date: 20110817
  Receipt Date: 20100629
  Transmission Date: 20111222
  Serious: No
  Sender: FDA-Public Use
  Company Number: 20097620

PATIENT
  Sex: Female

DRUGS (1)
  1. LIORESAL [Suspect]
     Indication: MUSCLE SPASTICITY
     Dosage: 378.9 MCG, DAILY, INTRATHECAL
     Route: 037

REACTIONS (1)
  - PAIN [None]
